FAERS Safety Report 9266785 (Version 1)
Quarter: 2013Q2

REPORT INFORMATION
  Report Type: Spontaneous
  Country: US (occurrence: US)
  Receive Date: 20130502
  Receipt Date: 20130502
  Transmission Date: 20140414
  Serious: Yes (Hospitalization)
  Sender: FDA-Public Use
  Company Number: US-BAYER-2013-053224

PATIENT
  Age: 45 Year
  Sex: Female

DRUGS (5)
  1. YAZ [Suspect]
     Dosage: UNK
     Dates: start: 20090811, end: 20101121
  2. SIMVASTATIN [Concomitant]
  3. AZITHROMYCIN [Concomitant]
  4. BENZONATATE [Concomitant]
  5. PREDNISONE [Concomitant]

REACTIONS (3)
  - Deep vein thrombosis [None]
  - Pain in extremity [None]
  - Oedema peripheral [None]
